APPROVED DRUG PRODUCT: AZITHROMYCIN
Active Ingredient: AZITHROMYCIN
Strength: EQ 2.5GM BASE/VIAL
Dosage Form/Route: INJECTABLE;INJECTION
Application: N050809 | Product #002
Applicant: TEVA PARENTERAL MEDICINES INC
Approved: Dec 19, 2006 | RLD: No | RS: No | Type: DISCN